FAERS Safety Report 4268175-5 (Version None)
Quarter: 2004Q1

REPORT INFORMATION
  Report Type: 
  Country: None (occurrence: None)
  Receive Date: 20040109
  Receipt Date: 20030306
  Transmission Date: 20041129
  Serious: Yes (Death, Hospitalization, Disabling)
  Sender: FDA-Public Use
  Company Number: WAES 0303USA00625

PATIENT
  Age: 56 Year
  Sex: Male
  Weight: 64 kg

DRUGS (7)
  1. TYLENOL [Concomitant]
  2. LOMOTIL [Concomitant]
  3. PREDNISONE [Concomitant]
     Dates: start: 20010123, end: 20010125
  4. PREDNISONE [Concomitant]
     Route: 048
     Dates: start: 20010126, end: 20010128
  5. PREDNISONE [Concomitant]
     Dates: start: 20010129
  6. VIOXX [Suspect]
     Route: 048
     Dates: start: 20010123, end: 20010228
  7. VIOXX [Suspect]
     Route: 048
     Dates: start: 20010123, end: 20010228

REACTIONS (23)
  - ABDOMINAL PAIN UPPER [None]
  - ALANINE AMINOTRANSFERASE INCREASED [None]
  - ARTHRALGIA [None]
  - BLOOD ALKALINE PHOSPHATASE INCREASED [None]
  - CARDIOVASCULAR DISORDER [None]
  - CHOLELITHIASIS [None]
  - DEHYDRATION [None]
  - DIARRHOEA [None]
  - EARLY SATIETY [None]
  - EMOTIONAL DISTRESS [None]
  - GASTRITIS [None]
  - HAEMATEMESIS [None]
  - JOINT CREPITATION [None]
  - JOINT EFFUSION [None]
  - JOINT RANGE OF MOTION DECREASED [None]
  - MUCOSAL HAEMORRHAGE [None]
  - NAUSEA [None]
  - OESOPHAGITIS [None]
  - RENAL FAILURE [None]
  - RESPIRATORY ARREST [None]
  - SYNOVITIS [None]
  - UPPER GASTROINTESTINAL HAEMORRHAGE [None]
  - VOMITING [None]
